FAERS Safety Report 12269755 (Version 10)
Quarter: 2017Q1

REPORT INFORMATION
  Report Type: Report from Study
  Country: US (occurrence: US)
  Receive Date: 20160414
  Receipt Date: 20170226
  Transmission Date: 20170428
  Serious: Yes (Hospitalization, Other)
  Sender: FDA-Public Use
  Company Number: PHHY2016US048675

PATIENT
  Age: 18 Year
  Sex: Male
  Weight: 70.7 kg

DRUGS (20)
  1. CAYSTON [Suspect]
     Active Substance: AZTREONAM
     Indication: PRODUCT USED FOR UNKNOWN INDICATION
     Route: 065
  2. AQUADEKS                           /07679501/ [Concomitant]
     Active Substance: MINERALS\VITAMINS
     Indication: NUTRITIONAL SUPPLEMENTATION
     Dosage: 2 DF, QD
     Route: 048
     Dates: start: 20110203
  3. TOBI PODHALER [Suspect]
     Active Substance: TOBRAMYCIN
     Dosage: 112 MG, BID
     Route: 055
     Dates: start: 20160401, end: 20160428
  4. CHOLECALCIFEROL [Concomitant]
     Active Substance: CHOLECALCIFEROL
     Indication: NUTRITIONAL SUPPLEMENTATION
     Dosage: 2000 IU, QD (IN THE MORNING)
     Route: 048
     Dates: start: 20151209
  5. TOBI PODHALER [Suspect]
     Active Substance: TOBRAMYCIN
     Indication: INFECTIVE PULMONARY EXACERBATION OF CYSTIC FIBROSIS
     Dosage: 112 MG, BID
     Route: 055
     Dates: start: 20140318
  6. TOBI PODHALER [Suspect]
     Active Substance: TOBRAMYCIN
     Indication: PROPHYLAXIS
     Dosage: 112 MG, BID
     Route: 055
     Dates: start: 20160201, end: 20160228
  7. TOBI PODHALER [Suspect]
     Active Substance: TOBRAMYCIN
     Dosage: 112 MG, BID
     Route: 055
     Dates: start: 20160628
  8. TOBI PODHALER [Suspect]
     Active Substance: TOBRAMYCIN
     Dosage: 112 MG, BID
     Route: 055
     Dates: start: 20160810
  9. ZANTAC [Concomitant]
     Active Substance: RANITIDINE HYDROCHLORIDE
     Indication: GASTROOESOPHAGEAL REFLUX DISEASE
     Dosage: 150 MG, QD (IN THE MORNING)
     Route: 048
     Dates: start: 20150218
  10. INTUNIV [Concomitant]
     Active Substance: GUANFACINE HYDROCHLORIDE
     Indication: ATTENTION DEFICIT/HYPERACTIVITY DISORDER
     Dosage: 4 MG, QD (IN THE MORNING)
     Route: 048
     Dates: start: 20140522
  11. MELATONIN [Concomitant]
     Active Substance: MELATONIN
     Indication: SLEEP DISORDER
     Dosage: 6 MG, QHS
     Route: 048
     Dates: start: 20160810
  12. TOBI PODHALER [Suspect]
     Active Substance: TOBRAMYCIN
     Dosage: 112 MG, BID
     Route: 055
     Dates: start: 20160601, end: 20160628
  13. TOBI PODHALER [Suspect]
     Active Substance: TOBRAMYCIN
     Dosage: 112 MG, BID (EVERY OTHER 28 DAYS)
     Route: 055
     Dates: start: 20161028
  14. HYPERSAL [Concomitant]
     Indication: PRODUCT USED FOR UNKNOWN INDICATION
     Dosage: 4 ML, BID
     Route: 055
  15. TYLENOL SINUS SEVERE CONGESTION [Concomitant]
     Indication: SINUS CONGESTION
     Dosage: 2 DF, PRN (Q6H)
     Route: 048
     Dates: start: 20151209
  16. CREON [Concomitant]
     Active Substance: PANCRELIPASE AMYLASE\PANCRELIPASE LIPASE\PANCRELIPASE PROTEASE
     Indication: PANCREATIC INSUFFICIENCY
     Dosage: 8 DF, (3 CAPSULES AT SNACKS AND 5 CAPSULES AT MEALS)
     Route: 048
     Dates: start: 20110223
  17. FOCALIN XR [Concomitant]
     Active Substance: DEXMETHYLPHENIDATE HYDROCHLORIDE
     Indication: ATTENTION DEFICIT/HYPERACTIVITY DISORDER
     Dosage: 20 MG, QD (IN THE MORNING)
     Route: 048
     Dates: start: 20150308
  18. LATUDA [Concomitant]
     Active Substance: LURASIDONE HYDROCHLORIDE
     Indication: BIPOLAR DISORDER
     Dosage: 60 MG, QHS
     Route: 048
     Dates: start: 20150803
  19. PHYTONADIONE. [Concomitant]
     Active Substance: PHYTONADIONE
     Indication: NUTRITIONAL SUPPLEMENTATION
     Dosage: 5 MG, QD
     Route: 048
     Dates: start: 20160322
  20. PULMOZYME [Concomitant]
     Active Substance: DORNASE ALFA
     Indication: MAINTENANCE OF ANAESTHESIA
     Dosage: 2.5 ML, QD
     Route: 055
     Dates: start: 20140522

REACTIONS (22)
  - Infective pulmonary exacerbation of cystic fibrosis [Recovered/Resolved]
  - Dyspnoea [Unknown]
  - Carbon dioxide increased [Unknown]
  - Infective pulmonary exacerbation of cystic fibrosis [Recovered/Resolved]
  - Chest discomfort [Unknown]
  - Bronchiectasis [Unknown]
  - Sputum discoloured [Unknown]
  - Urticaria [Recovered/Resolved]
  - Blood urea increased [Unknown]
  - Infective pulmonary exacerbation of cystic fibrosis [Recovered/Resolved]
  - Red blood cell count increased [Unknown]
  - White blood cell count increased [Unknown]
  - Pseudomonas test positive [Unknown]
  - Productive cough [Unknown]
  - Alanine aminotransferase increased [Unknown]
  - Infective pulmonary exacerbation of cystic fibrosis [Recovered/Resolved]
  - Blood creatinine decreased [Unknown]
  - Blood alkaline phosphatase increased [Unknown]
  - Pneumonia [Recovered/Resolved]
  - Sinusitis [Recovered/Resolved]
  - Staphylococcus test positive [Unknown]
  - Drug level increased [Unknown]

NARRATIVE: CASE EVENT DATE: 20160204
